FAERS Safety Report 25644059 (Version 1)
Quarter: 2025Q3

REPORT INFORMATION
  Report Type: Spontaneous
  Country: US (occurrence: US)
  Receive Date: 20250805
  Receipt Date: 20250805
  Transmission Date: 20251020
  Serious: Yes (Life-Threatening, Hospitalization)
  Sender: MYLAN
  Company Number: US-MYLANLABS-2025M1065240

PATIENT
  Age: 18 Year
  Sex: Female

DRUGS (16)
  1. EPINEPHRINE [Suspect]
     Active Substance: EPINEPHRINE
     Indication: Hypotension
  2. EPINEPHRINE [Suspect]
     Active Substance: EPINEPHRINE
     Route: 065
  3. EPINEPHRINE [Suspect]
     Active Substance: EPINEPHRINE
     Route: 065
  4. EPINEPHRINE [Suspect]
     Active Substance: EPINEPHRINE
  5. NOREPINEPHRINE [Suspect]
     Active Substance: NOREPINEPHRINE
     Indication: Hypotension
  6. NOREPINEPHRINE [Suspect]
     Active Substance: NOREPINEPHRINE
     Route: 065
  7. NOREPINEPHRINE [Suspect]
     Active Substance: NOREPINEPHRINE
     Route: 065
  8. NOREPINEPHRINE [Suspect]
     Active Substance: NOREPINEPHRINE
  9. MILRINONE [Suspect]
     Active Substance: MILRINONE
     Indication: Right ventricular dysfunction
  10. MILRINONE [Suspect]
     Active Substance: MILRINONE
     Route: 065
  11. MILRINONE [Suspect]
     Active Substance: MILRINONE
     Route: 065
  12. MILRINONE [Suspect]
     Active Substance: MILRINONE
  13. PHENYLEPHRINE [Suspect]
     Active Substance: PHENYLEPHRINE
     Indication: Hypotension
  14. PHENYLEPHRINE [Suspect]
     Active Substance: PHENYLEPHRINE
     Route: 065
  15. PHENYLEPHRINE [Suspect]
     Active Substance: PHENYLEPHRINE
     Route: 065
  16. PHENYLEPHRINE [Suspect]
     Active Substance: PHENYLEPHRINE

REACTIONS (1)
  - Drug ineffective [Unknown]
